FAERS Safety Report 22305011 (Version 1)
Quarter: 2023Q2

REPORT INFORMATION
  Report Type: Spontaneous
  Country: US (occurrence: None)
  Receive Date: 20230508
  Receipt Date: 20230508
  Transmission Date: 20230722
  Serious: Yes (Disabling)
  Sender: FDA-Public Use
  Company Number: None

PATIENT
  Age: 71 Year
  Sex: Female

DRUGS (7)
  1. SULFUR [Suspect]
     Active Substance: SULFUR
     Indication: Bed bug infestation
     Route: 061
  2. AZADIRACHTA INDICA SEED OIL [Suspect]
     Active Substance: AZADIRACHTA INDICA SEED OIL
     Indication: Bed bug infestation
     Route: 061
  3. CALCIUM [Concomitant]
     Active Substance: CALCIUM
  4. VITAMIN [Concomitant]
  5. VITAMIN D3 [Concomitant]
     Active Substance: CHOLECALCIFEROL
  6. MAGNESIUM ZINC [Concomitant]
  7. TYLENOL ARTHRITIS PAIN [Concomitant]
     Active Substance: ACETAMINOPHEN

REACTIONS (3)
  - Visual impairment [None]
  - Exposure via inhalation [None]
  - Application site odour [None]

NARRATIVE: CASE EVENT DATE: 20221130
